FAERS Safety Report 5954777-4 (Version None)
Quarter: 2008Q4

REPORT INFORMATION
  Report Type: 
  Country: None (occurrence: None)
  Receive Date: 20081112
  Receipt Date: 20081029
  Transmission Date: 20090506
  Serious: Yes (Death, Hospitalization)
  Sender: FDA-Public Use
  Company Number: 004858

PATIENT
  Sex: Female

DRUGS (1)
  1. PLETAL [Suspect]
     Indication: ARTERIOSCLEROSIS OBLITERANS
     Dosage: 200 MG, DAILY DOSE ORAL
     Route: 048

REACTIONS (2)
  - CHEST PAIN [None]
  - TACHYCARDIA PAROXYSMAL [None]
